FAERS Safety Report 17283594 (Version 1)
Quarter: 2020Q1

REPORT INFORMATION
  Report Type: Spontaneous
  Country: RO (occurrence: RO)
  Receive Date: 20200117
  Receipt Date: 20200117
  Transmission Date: 20200409
  Serious: Yes (Other)
  Sender: FDA-Public Use
  Company Number: RO-PFIZER INC-2020017880

PATIENT
  Age: 52 Year
  Sex: Female

DRUGS (2)
  1. LETROZOLUM [Concomitant]
     Dosage: 2.5 MG, UNK
     Route: 048
     Dates: start: 20181102
  2. IBRANCE [Suspect]
     Active Substance: PALBOCICLIB
     Indication: BREAST CANCER METASTATIC
     Dosage: 125 MG, CYCLIC (ONCE DAILY, 21 CONSECUTIVE DAYS, FOLLOWING 7 DAYS WITHOUT TREATMENT; SCHEME 3/1)
     Dates: start: 20181102

REACTIONS (4)
  - Hepatocellular injury [Unknown]
  - Alanine aminotransferase increased [Unknown]
  - Aspartate aminotransferase increased [Unknown]
  - Neoplasm progression [Recovering/Resolving]

NARRATIVE: CASE EVENT DATE: 20190411
